FAERS Safety Report 8608873 (Version 4)
Quarter: 2012Q4

REPORT INFORMATION
  Report Type: 
  Country: IL (occurrence: IL)
  Receive Date: 20120611
  Receipt Date: 20121018
  Transmission Date: 20130627
  Serious: Yes (Other)
  Sender: FDA-Public Use
  Company Number: IL-JNJFOC-20120603946

PATIENT
  Sex: Female

DRUGS (2)
  1. CLADRIBINE [Suspect]
     Indication: HAIRY CELL LEUKAEMIA
     Dosage: 0.1mg/kg for 5 days (2 hr infusion) or 7 days (continuous infusion)
     Route: 042
  2. RIFAMPIN [Concomitant]
     Route: 065

REACTIONS (5)
  - Hypersensitivity [Unknown]
  - Tuberculosis [Unknown]
  - Lymphopenia [Unknown]
  - Vasculitis [Unknown]
  - Pyrexia [Unknown]
